FAERS Safety Report 8875901 (Version 1)
Quarter: 2012Q4

REPORT INFORMATION
  Report Type: 
  Country: US (occurrence: US)
  Receive Date: 20121023
  Receipt Date: 20121023
  Transmission Date: 20130627
  Serious: Yes (Hospitalization)
  Sender: FDA-Public Use
  Company Number: US-GLAXOSMITHKLINE-A0880372A

PATIENT
  Age: 44 Year
  Sex: Female

DRUGS (1)
  1. AVANDIA [Suspect]
     Indication: TYPE 2 DIABETES MELLITUS
     Dosage: 8MG Per day
     Route: 048
     Dates: start: 20040316, end: 20070921

REACTIONS (4)
  - Transient ischaemic attack [Not Recovered/Not Resolved]
  - Cerebrovascular accident [Unknown]
  - Ankle fracture [Unknown]
  - Cardiac valve disease [Unknown]
